FAERS Safety Report 15219951 (Version 1)
Quarter: 2018Q3

REPORT INFORMATION
  Report Type: Spontaneous
  Country: US (occurrence: US)
  Receive Date: 20180731
  Receipt Date: 20180731
  Transmission Date: 20181010
  Serious: Yes (Other)
  Sender: FDA-Public Use
  Company Number: US-CIPLA LTD.-2018US20249

PATIENT

DRUGS (3)
  1. QUINAPRIL. [Suspect]
     Active Substance: QUINAPRIL
     Dosage: UNK
     Route: 048
  2. QUINAPRIL. [Suspect]
     Active Substance: QUINAPRIL
     Dosage: 40 MG, UNK
     Route: 048
  3. QUINAPRIL. [Suspect]
     Active Substance: QUINAPRIL
     Indication: PRODUCT USED FOR UNKNOWN INDICATION
     Dosage: 20 MG, UNK
     Route: 048
     Dates: start: 2009, end: 201511

REACTIONS (2)
  - Drug dispensing error [Unknown]
  - Cardiac disorder [Unknown]

NARRATIVE: CASE EVENT DATE: 201511
